FAERS Safety Report 8042186-6 (Version None)
Quarter: 2012Q1

REPORT INFORMATION
  Report Type: 
  Country: None (occurrence: None)
  Receive Date: 20120112
  Receipt Date: 20120103
  Transmission Date: 20120608
  Serious: Yes (Other)
  Sender: FDA-Public Use
  Company Number: FR-ASTRAZENECA-2011SE08369

PATIENT
  Age: 11051 Day
  Sex: Male

DRUGS (4)
  1. ENTOCORT EC [Suspect]
     Indication: CROHN'S DISEASE
     Route: 048
     Dates: start: 20100226
  2. REMICADE [Suspect]
     Indication: CROHN'S DISEASE
     Dosage: 5 MG/KG EVERY TWO MONTHS
     Route: 042
     Dates: start: 20100226, end: 20101122
  3. PENTASA [Suspect]
     Indication: CROHN'S DISEASE
     Route: 048
     Dates: start: 20100415
  4. LEVOTHYROXINE SODIUM [Concomitant]
     Indication: THYROID NEOPLASM
     Route: 048
     Dates: start: 20100801

REACTIONS (1)
  - PSORIASIS [None]
